FAERS Safety Report 15349894 (Version 1)
Quarter: 2018Q3

REPORT INFORMATION
  Report Type: Report from Study
  Country: BR (occurrence: BR)
  Receive Date: 20180904
  Receipt Date: 20180904
  Transmission Date: 20181010
  Serious: Yes (Other)
  Sender: FDA-Public Use
  Company Number: PHHY2018BR087373

PATIENT
  Age: 85 Year
  Sex: Female

DRUGS (1)
  1. DIOVAN AMLO FIX [Suspect]
     Active Substance: AMLODIPINE\VALSARTAN
     Indication: HYPERTENSION
     Dosage: (AMLODIPINE 5 MG, VALSARTAN 80 MG)
     Route: 065

REACTIONS (1)
  - Deafness [Unknown]
